FAERS Safety Report 5277405-2 (Version None)
Quarter: 2007Q1

REPORT INFORMATION
  Report Type: 
  Country: None (occurrence: None)
  Receive Date: 20061213
  Receipt Date: 20060720
  Transmission Date: 20070707
  Serious: Yes (Other)
  Sender: FDA-Public Use
  Company Number: 2006UW14877

PATIENT
  Age: 30 Year
  Sex: Female

DRUGS (2)
  1. SEROQUEL [Suspect]
     Dosage: 25 MG PO
     Route: 048
     Dates: start: 20060719
  2. ADIPEX [Concomitant]

REACTIONS (3)
  - MUSCLE RIGIDITY [None]
  - PAIN [None]
  - PAIN IN JAW [None]
